FAERS Safety Report 22269047 (Version 1)
Quarter: 2023Q2

REPORT INFORMATION
  Report Type: Spontaneous
  Country: DE (occurrence: DE)
  Receive Date: 20230501
  Receipt Date: 20230501
  Transmission Date: 20230722
  Serious: Yes (Other)
  Sender: FDA-Public Use
  Company Number: None

PATIENT
  Age: 33 Year
  Sex: Male
  Weight: 79 kg

DRUGS (1)
  1. FINASTERIDE [Suspect]
     Active Substance: FINASTERIDE
     Indication: Alopecia
     Dosage: 1MG
     Route: 048
     Dates: start: 20220921, end: 20230114

REACTIONS (10)
  - Depression [Recovered/Resolved with Sequelae]
  - Penile discomfort [Recovered/Resolved with Sequelae]
  - Collagen disorder [Recovered/Resolved with Sequelae]
  - Loss of libido [Recovered/Resolved with Sequelae]
  - Sleep disorder [Recovered/Resolved with Sequelae]
  - Muscle atrophy [Recovered/Resolved with Sequelae]
  - Lipoatrophy [Recovered/Resolved with Sequelae]
  - Erectile dysfunction [Unknown]
  - Enophthalmos [Recovered/Resolved with Sequelae]
  - Testicular atrophy [Recovered/Resolved with Sequelae]

NARRATIVE: CASE EVENT DATE: 20221219
